FAERS Safety Report 21927971 (Version 1)
Quarter: 2023Q1

REPORT INFORMATION
  Report Type: Spontaneous
  Country: None (occurrence: US)
  Receive Date: 20230130
  Receipt Date: 20230130
  Transmission Date: 20230418
  Serious: No
  Sender: FDA-Public Use
  Company Number: US-Ascend Therapeutics US, LLC-2137255

PATIENT
  Age: 63 Year
  Sex: Female
  Weight: 119.55 kg

DRUGS (4)
  1. ESTROGEL [Suspect]
     Active Substance: ESTRADIOL
     Indication: Menopausal symptoms
     Route: 061
     Dates: start: 201211
  2. ESTROGEL [Suspect]
     Active Substance: ESTRADIOL
  3. ESTROGEL [Suspect]
     Active Substance: ESTRADIOL
     Route: 061
     Dates: start: 201211
  4. ESTROGEL [Suspect]
     Active Substance: ESTRADIOL
     Route: 061

REACTIONS (3)
  - Product quality issue [None]
  - Incorrect dose administered [None]
  - Intentional dose omission [None]

NARRATIVE: CASE EVENT DATE: 20220516
